FAERS Safety Report 9928578 (Version 2)
Quarter: 2014Q2

REPORT INFORMATION
  Report Type: Spontaneous
  Country: CA (occurrence: None)
  Receive Date: 20140225
  Receipt Date: 20140523
  Transmission Date: 20141212
  Serious: Yes (Hospitalization)
  Sender: FDA-Public Use
  Company Number: CA-014767

PATIENT
  Age: 89 Year
  Sex: Male

DRUGS (2)
  1. FIRMAGON /01764801/ (FIRMAGON) 80 MG (NOT SPECIFIED) [Suspect]
     Indication: PROSTATE CANCER
     Dosage: 1X/MONTH SUBCUTANEOUS)
     Route: 058
     Dates: start: 20131023, end: 20140414
  2. ASAPHEN [Concomitant]

REACTIONS (1)
  - Fall [None]
